FAERS Safety Report 16904947 (Version 3)
Quarter: 2019Q4

REPORT INFORMATION
  Report Type: Spontaneous
  Country: JP (occurrence: JP)
  Receive Date: 20191010
  Receipt Date: 20191119
  Transmission Date: 20200122
  Serious: Yes (Other)
  Sender: FDA-Public Use
  Company Number: JP-JNJFOC-20191007909

PATIENT
  Sex: Female

DRUGS (2)
  1. REMINYL [Suspect]
     Active Substance: GALANTAMINE
     Indication: DEMENTIA
     Route: 048
  2. VESICARE [Interacting]
     Active Substance: SOLIFENACIN SUCCINATE
     Indication: HYPERTONIC BLADDER
     Dosage: UNKNOWN
     Route: 048

REACTIONS (4)
  - Drug interaction [Unknown]
  - Cold sweat [Unknown]
  - Hyperhidrosis [Recovered/Resolved]
  - Renal impairment [Unknown]
